FAERS Safety Report 5705840-4 (Version None)
Quarter: 2008Q2

REPORT INFORMATION
  Report Type: 
  Country: None (occurrence: None)
  Receive Date: 20080415
  Receipt Date: 20080407
  Transmission Date: 20081010
  Serious: Yes (Other)
  Sender: FDA-Public Use
  Company Number: US-ASTRAZENECA-2008UW06898

PATIENT
  Age: 79 Year
  Sex: Female
  Weight: 49.9 kg

DRUGS (7)
  1. ARIMIDEX [Suspect]
     Indication: BREAST CANCER
     Route: 048
     Dates: start: 20050101
  2. CALCIUM [Concomitant]
     Route: 048
  3. TOPROL-XL [Concomitant]
     Route: 048
  4. VITAMIN E [Concomitant]
  5. PHENOBARBITAL TAB [Concomitant]
  6. AMIODARONE [Concomitant]
  7. NEXIUM [Concomitant]

REACTIONS (7)
  - ARTHRALGIA [None]
  - ASTHENIA [None]
  - DEPRESSION [None]
  - FALL [None]
  - HOT FLUSH [None]
  - OSTEOPOROSIS [None]
  - SPINAL COMPRESSION FRACTURE [None]
